FAERS Safety Report 18376545 (Version 1)
Quarter: 2020Q4

REPORT INFORMATION
  Report Type: Spontaneous
  Country: US (occurrence: US)
  Receive Date: 20201012
  Receipt Date: 20201012
  Transmission Date: 20210114
  Serious: Yes (Other)
  Sender: FDA-Public Use
  Company Number: None

PATIENT
  Age: 4 Year
  Sex: Male
  Weight: 19.35 kg

DRUGS (3)
  1. MONTELUKAST [Suspect]
     Active Substance: MONTELUKAST SODIUM
     Indication: MULTIPLE ALLERGIES
     Dosage: ?          QUANTITY:1 TABLET(S);?
     Route: 048
     Dates: start: 20200420, end: 20200925
  2. GUMMIES ( IMMINE SYSTEM) [Concomitant]
  3. VITAMIN (FLINTSTONE COMPLETE) [Concomitant]

REACTIONS (8)
  - Abnormal behaviour [None]
  - Anger [None]
  - Crying [None]
  - Headache [None]
  - Tic [None]
  - Facial spasm [None]
  - Nightmare [None]
  - Excessive eye blinking [None]

NARRATIVE: CASE EVENT DATE: 20200926
